FAERS Safety Report 12931811 (Version 1)
Quarter: 2016Q4

REPORT INFORMATION
  Report Type: Spontaneous
  Country: US (occurrence: US)
  Receive Date: 20161111
  Receipt Date: 20161111
  Transmission Date: 20170207
  Serious: Yes (Other)
  Sender: FDA-Public Use
  Company Number: US-BRISTOL-MYERS SQUIBB COMPANY-BMS-2016-087903

PATIENT
  Sex: Female

DRUGS (1)
  1. OPDIVO [Suspect]
     Active Substance: NIVOLUMAB
     Indication: LUNG NEOPLASM MALIGNANT
     Dosage: UNK UNK, Q2WK
     Route: 065
     Dates: start: 20151222

REACTIONS (8)
  - Fatigue [Recovering/Resolving]
  - Vision blurred [Unknown]
  - Constipation [Unknown]
  - White blood cell count increased [Unknown]
  - Colitis [Recovered/Resolved]
  - Asthenopia [Unknown]
  - Dizziness [Recovering/Resolving]
  - Neuralgia [Recovering/Resolving]
